FAERS Safety Report 6999976-8 (Version None)
Quarter: 2010Q3

REPORT INFORMATION
  Report Type: 
  Country: None (occurrence: None)
  Receive Date: 20100920
  Receipt Date: 20100706
  Transmission Date: 20110219
  Serious: No
  Sender: FDA-Public Use
  Company Number: US-ASTRAZENECA-2009UW19556

PATIENT
  Age: 37 Year
  Sex: Female

DRUGS (30)
  1. SEROQUEL [Suspect]
     Indication: BIPOLAR DISORDER
     Route: 048
     Dates: start: 19980101
  2. SEROQUEL [Suspect]
     Indication: AFFECTIVE DISORDER
     Route: 048
     Dates: start: 19980101
  3. SEROQUEL [Suspect]
     Dosage: 25 MG TO 100 MG
     Route: 048
     Dates: start: 20030618
  4. SEROQUEL [Suspect]
     Dosage: 25 MG TO 100 MG
     Route: 048
     Dates: start: 20030618
  5. ATIVAN [Concomitant]
     Route: 048
     Dates: start: 20040116
  6. LITHIUM [Concomitant]
     Dosage: 600 MG TO 1200 MG
     Route: 048
     Dates: start: 20021016
  7. RISPERDAL [Concomitant]
     Dosage: 0.5 MG TO 1 MG
     Route: 048
     Dates: start: 20021112
  8. WELLBUTRIN SR [Concomitant]
     Route: 048
     Dates: start: 20020917
  9. LOVASTATIN [Concomitant]
     Route: 048
  10. LORTAB [Concomitant]
     Indication: PAIN
     Route: 048
  11. ASPIRIN [Concomitant]
     Route: 048
  12. ATENOLOL [Concomitant]
     Route: 048
  13. SINGULAIR [Concomitant]
     Indication: MULTIPLE ALLERGIES
     Route: 048
  14. SINGULAIR [Concomitant]
     Indication: ASTHMA
     Route: 048
  15. LAMICTAL [Concomitant]
     Route: 048
  16. SOMA [Concomitant]
  17. KLONOPIN [Concomitant]
     Route: 048
  18. LIDODERM [Concomitant]
     Indication: ARTHROPATHY
     Dosage: 3 PATCHES 35 DAILY
     Route: 061
  19. LIDODERM [Concomitant]
     Indication: NECK PAIN
     Dosage: 3 PATCHES 35 DAILY
     Route: 061
  20. LIDODERM [Concomitant]
     Indication: BACK PAIN
     Dosage: 3 PATCHES 35 DAILY
     Route: 061
  21. LIDODERM [Concomitant]
     Dosage: 50 MG 3-4 WEEKS
  22. LIDODERM [Concomitant]
     Dosage: 50 MG 3-4 WEEKS
  23. LIDODERM [Concomitant]
     Dosage: 50 MG 3-4 WEEKS
  24. DEPO-PROVERA [Concomitant]
     Dosage: ONCE MONTHLY
  25. TESTOSTERONE [Concomitant]
     Dosage: ONCE MONTHLY
  26. FISH OIL [Concomitant]
  27. ASCORBIC ACID [Concomitant]
  28. VITAMIN B-12 [Concomitant]
  29. ACTOS [Concomitant]
     Route: 048
  30. METFORMIN [Concomitant]
     Route: 048

REACTIONS (5)
  - CHRONIC FATIGUE SYNDROME [None]
  - INTERVERTEBRAL DISC DEGENERATION [None]
  - POLYCYTHAEMIA VERA [None]
  - TYPE 2 DIABETES MELLITUS [None]
  - VENTRICULAR EXTRASYSTOLES [None]
